FAERS Safety Report 6763665-5 (Version None)
Quarter: 2010Q2

REPORT INFORMATION
  Report Type: 
  Country: None (occurrence: None)
  Receive Date: 20100610
  Receipt Date: 20100601
  Transmission Date: 20101027
  Serious: Yes (Other)
  Sender: FDA-Public Use
  Company Number: PL-ABBOTT-10P-129-0645259-00

PATIENT
  Sex: Female

DRUGS (18)
  1. GOPTEN [Suspect]
     Indication: HYPERTENSION
     Route: 048
  2. DAPAGLIFLOZIN [Suspect]
     Indication: TYPE 2 DIABETES MELLITUS
     Route: 048
  3. PLACEBO [Suspect]
     Indication: TYPE 2 DIABETES MELLITUS
     Route: 048
  4. SPIRONOL [Suspect]
     Indication: HYPERTENSION
     Route: 048
  5. FUROSEMIDE [Suspect]
     Indication: HYPERTENSION
     Route: 048
  6. ACTRAPID [Suspect]
     Indication: DIABETES MELLITUS
     Route: 051
     Dates: start: 19940101
  7. INSULATARD [Suspect]
     Indication: DIABETES MELLITUS
     Route: 051
     Dates: start: 19940101
  8. SIOFOR [Suspect]
     Indication: DIABETES MELLITUS
  9. BIOSOTAL [Suspect]
     Indication: ARRHYTHMIA
     Route: 048
  10. BESTPIRIN [Suspect]
     Indication: CORONARY ARTERY DISEASE
     Route: 048
  11. MILURIT [Suspect]
     Indication: GOUT
     Route: 048
  12. ATORIS [Suspect]
     Indication: HYPERCHOLESTEROLAEMIA
     Route: 048
  13. MILGAMMA [Suspect]
     Indication: DRUG USE FOR UNKNOWN INDICATION
     Route: 048
  14. TRANXENE [Suspect]
     Indication: DRUG USE FOR UNKNOWN INDICATION
     Route: 048
  15. KETONAL [Suspect]
     Indication: DRUG USE FOR UNKNOWN INDICATION
     Route: 048
  16. PENTOXIFYLLINE [Suspect]
     Indication: DRUG USE FOR UNKNOWN INDICATION
  17. AMOXICILLIN [Concomitant]
     Indication: DRUG USE FOR UNKNOWN INDICATION
     Dates: start: 20100402, end: 20100416
  18. CLAVULANATE POTASSIUM [Concomitant]
     Indication: DRUG USE FOR UNKNOWN INDICATION
     Dates: start: 20100402, end: 20100416

REACTIONS (3)
  - PAIN IN EXTREMITY [None]
  - PERIPHERAL VASCULAR DISORDER [None]
  - PULSE ABSENT [None]
